FAERS Safety Report 13699987 (Version 2)
Quarter: 2017Q3

REPORT INFORMATION
  Report Type: Spontaneous
  Country: AU (occurrence: AU)
  Receive Date: 20170629
  Receipt Date: 20170725
  Transmission Date: 20171127
  Serious: Yes (Hospitalization, Other)
  Sender: FDA-Public Use
  Company Number: AU-ROCHE-1955254

PATIENT
  Sex: Female

DRUGS (1)
  1. VALIUM [Suspect]
     Active Substance: DIAZEPAM
     Indication: PRODUCT USED FOR UNKNOWN INDICATION
     Dosage: TABLETS 5 MG IN PVC BLISTER 50 EA AU
     Route: 065

REACTIONS (3)
  - Counterfeit drug administered [Unknown]
  - Product counterfeit [Unknown]
  - Blood pressure abnormal [Unknown]
